FAERS Safety Report 20194811 (Version 1)
Quarter: 2021Q4

REPORT INFORMATION
  Report Type: Spontaneous
  Country: US (occurrence: None)
  Receive Date: 20211215
  Receipt Date: 20211215
  Transmission Date: 20220303
  Serious: No
  Sender: FDA-Public Use
  Company Number: None

PATIENT

DRUGS (1)
  1. JEVTANA [Suspect]
     Active Substance: CABAZITAXEL

REACTIONS (5)
  - Product preparation error [None]
  - Product label confusion [None]
  - Product preparation issue [None]
  - Wrong technique in product usage process [None]
  - Product label issue [None]
